FAERS Safety Report 20263515 (Version 1)
Quarter: 2021Q4

REPORT INFORMATION
  Report Type: Report from Study
  Country: KZ (occurrence: KZ)
  Receive Date: 20211231
  Receipt Date: 20211231
  Transmission Date: 20220303
  Serious: Yes (Other)
  Sender: FDA-Public Use
  Company Number: KZ-TEVA-2021-KZ-1996041

PATIENT
  Age: 39 Year
  Sex: Female
  Weight: 55 kg

DRUGS (3)
  1. AJOVY [Suspect]
     Active Substance: FREMANEZUMAB-VFRM
     Indication: Migraine
     Dosage: DATE OF LAST DOSE: 25-NOV-2021
     Route: 058
     Dates: start: 20211025
  2. SEVPRAM [Concomitant]
     Indication: Migraine
     Dosage: DURING MIGRAINE ATTACKS, WHILE TAKING AJOVY, THE DOSAGES WERE REDUCED TWICE ON THE RECOMMENDATION OF
     Route: 048
  3. Elenium [Concomitant]
     Indication: Migraine
     Dosage: DURING MIGRAINE ATTACKS, WHILE TAKING AJOVY, THE DOSAGES WERE REDUCED TWICE ON THE RECOMMENDATION OF
     Route: 048

REACTIONS (4)
  - Migraine [Not Recovered/Not Resolved]
  - Ocular hyperaemia [Not Recovered/Not Resolved]
  - Headache [Not Recovered/Not Resolved]
  - Drug ineffective [Unknown]

NARRATIVE: CASE EVENT DATE: 20210101
